FAERS Safety Report 23073847 (Version 2)
Quarter: 2023Q4

REPORT INFORMATION
  Report Type: Report from Study
  Country: IN (occurrence: None)
  Receive Date: 20231017
  Receipt Date: 20231024
  Transmission Date: 20240110
  Serious: Yes (Hospitalization)
  Sender: FDA-Public Use
  Company Number: IN-ROCHE-3430523

PATIENT
  Age: 49 Year
  Sex: Female
  Weight: 52.9 kg

DRUGS (43)
  1. PERTUZUMAB\TRASTUZUMAB [Suspect]
     Active Substance: PERTUZUMAB\TRASTUZUMAB
     Indication: HER2 positive breast cancer
     Dosage: DAILY DOSE : 600MG+600MG/10 ML (CYCLE 3-CYCLE 6)?SUBSEQUENT DOSES RECEIVED ON : 14/JUL/2023, 04/AUG/
     Route: 058
     Dates: start: 20230623
  2. PERTUZUMAB\TRASTUZUMAB [Suspect]
     Active Substance: PERTUZUMAB\TRASTUZUMAB
     Dosage: DATE OF LAST DOSE OF STUDY DRUG PRIOR TO AE: 15/SEP/2023
     Route: 058
     Dates: start: 20230915
  3. DOCETAXEL [Suspect]
     Active Substance: DOCETAXEL
     Indication: HER2 positive breast cancer
     Dosage: SUBSEQUENT DOSES RECEIVED ON : 14/JUL/2023, 04/AUG/2023, 25/AUG/2023 ,15/SEP/2023 AND 06/OCT/2023
     Route: 042
     Dates: start: 20230623
  4. PERTUZUMAB [Suspect]
     Active Substance: PERTUZUMAB
     Indication: HER2 positive breast cancer
     Dosage: LOADING DOSE (CYCLE 1)
     Route: 042
     Dates: start: 20230623
  5. PERTUZUMAB [Suspect]
     Active Substance: PERTUZUMAB
     Dosage: MAINTENENCE DOSE (CYCLE 2 AND 3)? LAST DOSE OF STUDY DRUG PRIOR TO AE:04/AUG/2023
     Route: 042
     Dates: start: 20230623
  6. TRASTUZUMAB [Suspect]
     Active Substance: TRASTUZUMAB
     Indication: HER2 positive breast cancer
     Dosage: CYCLE 1 -413 MG
     Route: 041
     Dates: start: 20230623
  7. TRASTUZUMAB [Suspect]
     Active Substance: TRASTUZUMAB
     Dosage: MAINTENECE DOSE CYCLE 2 -313 MG?CYCLE 3-304 MG
     Route: 041
  8. TRASTUZUMAB [Suspect]
     Active Substance: TRASTUZUMAB
     Dosage: LAST DOSE PRIOR TO AE:04/AUG/2023
     Route: 041
     Dates: start: 20230623
  9. METFORMIN [Concomitant]
     Active Substance: METFORMIN HYDROCHLORIDE
     Indication: Type 2 diabetes mellitus
     Dates: start: 2023
  10. PEGFILGRASTIM [Concomitant]
     Active Substance: PEGFILGRASTIM
     Route: 058
     Dates: start: 20230623, end: 20230915
  11. PEGFILGRASTIM [Concomitant]
     Active Substance: PEGFILGRASTIM
     Route: 058
     Dates: start: 20230626, end: 20231009
  12. VOGLIBOSE [Concomitant]
     Active Substance: VOGLIBOSE
     Indication: Type 2 diabetes mellitus
     Route: 048
     Dates: start: 2023, end: 20230930
  13. GABAPENTIN [Concomitant]
     Active Substance: GABAPENTIN
     Indication: Pain
     Route: 048
     Dates: start: 20230623, end: 20230922
  14. GLIMEPIRIDE [Concomitant]
     Active Substance: GLIMEPIRIDE
     Indication: Type 2 diabetes mellitus
     Route: 048
     Dates: start: 2023
  15. METOCLOPRAMIDE HYDROCHLORIDE [Concomitant]
     Active Substance: METOCLOPRAMIDE HYDROCHLORIDE
     Indication: Prophylaxis
     Route: 048
     Dates: start: 20230915, end: 20230922
  16. LIQUID PARAFFIN;MILK OF MAGNESIA;SODIUM PICOSULPHATE [Concomitant]
     Indication: Constipation
     Route: 048
     Dates: start: 20230915, end: 202309
  17. CEFTRIAXONE [Concomitant]
     Active Substance: CEFTRIAXONE\CEFTRIAXONE SODIUM
     Indication: Bacterial infection
     Route: 042
     Dates: start: 20230923, end: 20230924
  18. AMIKACIN [Concomitant]
     Active Substance: AMIKACIN
     Indication: Bacterial infection
     Route: 042
     Dates: start: 20230923, end: 20230924
  19. MEROPENEM [Concomitant]
     Active Substance: MEROPENEM
     Indication: Abdominal infection
     Route: 042
     Dates: start: 20230924, end: 20230926
  20. MEROPENEM [Concomitant]
     Active Substance: MEROPENEM
     Indication: Bacterial infection
     Route: 042
     Dates: start: 20230926
  21. PANTOPRAZOLE [Concomitant]
     Active Substance: PANTOPRAZOLE
     Indication: Gastrooesophageal reflux disease
     Route: 042
     Dates: start: 20230924, end: 20230926
  22. PANTOPRAZOLE [Concomitant]
     Active Substance: PANTOPRAZOLE
     Route: 042
     Dates: start: 20230926, end: 20230930
  23. METRONIDAZOLE [Concomitant]
     Active Substance: METRONIDAZOLE
     Indication: Bacterial infection
     Route: 042
     Dates: start: 20230924, end: 20230926
  24. METRONIDAZOLE [Concomitant]
     Active Substance: METRONIDAZOLE
     Route: 042
     Dates: start: 20230926, end: 20230930
  25. NOREPINEPHRINE [Concomitant]
     Active Substance: NOREPINEPHRINE
     Indication: Hypotension
     Route: 042
     Dates: start: 20230924, end: 20230926
  26. ONDANSETRON [Concomitant]
     Active Substance: ONDANSETRON
     Route: 042
     Dates: start: 20230924, end: 20230926
  27. ONDANSETRON [Concomitant]
     Active Substance: ONDANSETRON
     Route: 042
     Dates: start: 20230926, end: 20230928
  28. DOXYCYCLINE [Concomitant]
     Active Substance: DOXYCYCLINE
     Indication: Bacterial infection
     Route: 048
     Dates: start: 20230924, end: 20230926
  29. RACECADOTRIL [Concomitant]
     Active Substance: RACECADOTRIL
     Indication: Diarrhoea
     Route: 048
     Dates: start: 20230924, end: 20230926
  30. RACECADOTRIL [Concomitant]
     Active Substance: RACECADOTRIL
     Route: 048
     Dates: start: 20230927, end: 20230930
  31. ACETAMINOPHEN [Concomitant]
     Active Substance: ACETAMINOPHEN
     Indication: Pyrexia
     Route: 048
     Dates: start: 20230924, end: 20230926
  32. ACETAMINOPHEN [Concomitant]
     Active Substance: ACETAMINOPHEN
     Route: 048
     Dates: start: 20230926, end: 20230929
  33. ACETAMINOPHEN [Concomitant]
     Active Substance: ACETAMINOPHEN
     Route: 048
     Dates: start: 20230927, end: 20230927
  34. ACETAMINOPHEN [Concomitant]
     Active Substance: ACETAMINOPHEN
     Route: 042
     Dates: start: 20230926, end: 20230926
  35. CALCIUM CARBONATE\CHOLECALCIFEROL [Concomitant]
     Active Substance: CALCIUM CARBONATE\CHOLECALCIFEROL
     Route: 048
     Dates: start: 20230926
  36. SODIUM CHLORIDE;SODIUM LACTATE [Concomitant]
     Indication: Hypovolaemia
     Route: 042
     Dates: start: 20230926, end: 20230928
  37. CHLORHEXIDINE HCL [Concomitant]
     Indication: Oral infection
     Dates: start: 20230927
  38. CIPROFLOXACIN [Concomitant]
     Active Substance: CIPROFLOXACIN
     Route: 042
     Dates: start: 20230926, end: 20230930
  39. RIFAXIMIN [Concomitant]
     Active Substance: RIFAXIMIN
     Indication: Diarrhoea
     Route: 048
     Dates: start: 20230927, end: 20230930
  40. BACILLUS SUBTILIS [Concomitant]
     Active Substance: BACILLUS SUBTILIS
     Indication: Diarrhoea
     Route: 048
     Dates: start: 20230927, end: 20230929
  41. CYPROHEPTADINE [Concomitant]
     Active Substance: CYPROHEPTADINE
     Route: 048
     Dates: start: 20230928
  42. ACARBOSE [Concomitant]
     Active Substance: ACARBOSE
     Indication: Type 2 diabetes mellitus
     Route: 048
     Dates: start: 20231001
  43. METFORMIN [Concomitant]
     Active Substance: METFORMIN HYDROCHLORIDE
     Indication: Type 2 diabetes mellitus
     Route: 048
     Dates: start: 20231001

REACTIONS (3)
  - Gastroenteritis shigella [Recovered/Resolved]
  - Sepsis [Recovered/Resolved]
  - Shock [Recovered/Resolved]

NARRATIVE: CASE EVENT DATE: 20230922
